FAERS Safety Report 7486997-4 (Version None)
Quarter: 2011Q2

REPORT INFORMATION
  Report Type: 
  Country: None (occurrence: None)
  Receive Date: 20110518
  Receipt Date: 20110504
  Transmission Date: 20111010
  Serious: Yes (Hospitalization)
  Sender: FDA-Public Use
  Company Number: GB-MYLANLABS-2011S1009192

PATIENT
  Age: 63 Year
  Sex: Female

DRUGS (2)
  1. OMEPRAZOLE [Suspect]
     Indication: PRODUCT USED FOR UNKNOWN INDICATION
  2. SOLUTIONS FOR PARENTERAL NUTRITION [Suspect]
     Indication: NUTRITIONAL SUPPORT
     Route: 042

REACTIONS (5)
  - ACIDOSIS HYPERCHLORAEMIC [None]
  - TRACHEAL OBSTRUCTION [None]
  - BLOOD SODIUM DECREASED [None]
  - INCREASED VISCOSITY OF BRONCHIAL SECRETION [None]
  - BLOOD BICARBONATE DECREASED [None]
